FAERS Safety Report 18323809 (Version 2)
Quarter: 2020Q3

REPORT INFORMATION
  Report Type: Report from Study
  Country: US (occurrence: US)
  Receive Date: 20200929
  Receipt Date: 20200930
  Transmission Date: 20201103
  Serious: Yes (Hospitalization)
  Sender: FDA-Public Use
  Company Number: US-GLAXOSMITHKLINE-US2020AMR182532

PATIENT
  Sex: Female

DRUGS (2)
  1. ZOFRAN [Concomitant]
     Active Substance: ONDANSETRON HYDROCHLORIDE
     Indication: PRODUCT USED FOR UNKNOWN INDICATION
     Dosage: UNK
  2. NIRAPARIB [Suspect]
     Active Substance: NIRAPARIB
     Indication: OVARIAN CANCER
     Dosage: 100 MG, QD
     Dates: start: 20200902

REACTIONS (7)
  - Retching [Unknown]
  - Nausea [Unknown]
  - Vomiting [Unknown]
  - Sleep disorder [Not Recovered/Not Resolved]
  - Off label use [Unknown]
  - Pyrexia [Recovering/Resolving]
  - Gastrooesophageal reflux disease [Recovered/Resolved]
